FAERS Safety Report 20393576 (Version 2)
Quarter: 2022Q1

REPORT INFORMATION
  Report Type: Spontaneous
  Country: US (occurrence: US)
  Receive Date: 20220128
  Receipt Date: 20220214
  Transmission Date: 20220423
  Serious: Yes (Hospitalization)
  Sender: FDA-Public Use
  Company Number: US-CELGENE-USA-20220106994

PATIENT
  Age: 80 Year

DRUGS (3)
  1. ABRAXANE [Suspect]
     Active Substance: PACLITAXEL
     Indication: Product used for unknown indication
     Dosage: 200 MILLIGRAM
     Route: 058
     Dates: start: 20210913, end: 20220118
  2. ABRAXANE [Suspect]
     Active Substance: PACLITAXEL
     Route: 058
     Dates: start: 20220112
  3. GEMZAR [Concomitant]
     Active Substance: GEMCITABINE HYDROCHLORIDE
     Indication: Neoplasm malignant
     Dosage: 1254 MILLIGRAM
     Route: 058
     Dates: start: 20210913

REACTIONS (2)
  - Neuropathy peripheral [Recovered/Resolved]
  - Fatigue [Recovered/Resolved]

NARRATIVE: CASE EVENT DATE: 20211022
